FAERS Safety Report 25057867 (Version 3)
Quarter: 2025Q1

REPORT INFORMATION
  Report Type: Spontaneous
  Country: CH (occurrence: CH)
  Receive Date: 20250310
  Receipt Date: 20250318
  Transmission Date: 20250408
  Serious: No
  Sender: BAYER HEALTHCARE PHARMACEUTICALS INC.
  Company Number: CH-BAYER-2025A026471

PATIENT
  Age: 24 Year
  Sex: Female

DRUGS (2)
  1. KYLEENA [Suspect]
     Active Substance: LEVONORGESTREL
     Indication: Contraception
     Dosage: 17.5?G/DAY
     Route: 015
     Dates: start: 20221215, end: 20240905
  2. Cetecologita [Concomitant]
     Indication: Asthma

REACTIONS (8)
  - Chronic sinusitis [Recovering/Resolving]
  - Panic attack [Recovered/Resolved]
  - Depression [Recovered/Resolved]
  - Seasonal allergy [Recovered/Resolved]
  - Asthma [Recovered/Resolved]
  - Loss of libido [Recovered/Resolved]
  - Acne [Recovered/Resolved]
  - Malaise [Recovered/Resolved]

NARRATIVE: CASE EVENT DATE: 20230101
